FAERS Safety Report 6983448-0 (Version None)
Quarter: 2010Q3

REPORT INFORMATION
  Report Type: 
  Country: None (occurrence: None)
  Receive Date: 20100914
  Receipt Date: 20080611
  Transmission Date: 20110219
  Serious: No
  Sender: FDA-Public Use
  Company Number: US-WYE-H04458708

PATIENT
  Age: 11 Year
  Sex: Male
  Weight: 46.31 kg

DRUGS (1)
  1. ADVIL LIQUI-GELS [Suspect]
     Indication: TENSION
     Dosage: 1 TABLET X 1
     Route: 048

REACTIONS (2)
  - DRUG ADMINISTRATION ERROR [None]
  - DRUG INEFFECTIVE [None]
